FAERS Safety Report 5700769-X (Version None)
Quarter: 2008Q2

REPORT INFORMATION
  Report Type: 
  Country: None (occurrence: None)
  Receive Date: 20080410
  Receipt Date: 20080326
  Transmission Date: 20081010
  Serious: Yes (Hospitalization, Other)
  Sender: FDA-Public Use
  Company Number: BE-AMGEN-UK271061

PATIENT
  Sex: Male
  Weight: 75 kg

DRUGS (2)
  1. NEUPOGEN [Suspect]
     Indication: NEUTROPENIA
     Route: 065
     Dates: start: 20080201, end: 20080302
  2. ARANESP [Concomitant]
     Indication: ANAEMIA OF MALIGNANT DISEASE
     Route: 058
     Dates: start: 20080201, end: 20080302

REACTIONS (1)
  - SKIN INFLAMMATION [None]
